FAERS Safety Report 17608451 (Version 2)
Quarter: 2020Q2

REPORT INFORMATION
  Report Type: Spontaneous
  Country: US (occurrence: US)
  Receive Date: 20200331
  Receipt Date: 20200429
  Transmission Date: 20200713
  Serious: No
  Sender: FDA-Public Use
  Company Number: US-BAUSCH-BL-2020-008644

PATIENT
  Sex: Female

DRUGS (1)
  1. LATANOPROST OPHTHALMIC SOLUTION 0.005% [Suspect]
     Active Substance: LATANOPROST
     Indication: GLAUCOMA
     Route: 047
     Dates: end: 20200317

REACTIONS (3)
  - Product closure removal difficult [Unknown]
  - Therapy interrupted [Unknown]
  - Limb injury [Unknown]

NARRATIVE: CASE EVENT DATE: 202003
